FAERS Safety Report 18565678 (Version 2)
Quarter: 2020Q4

REPORT INFORMATION
  Report Type: Report from Study
  Country: US (occurrence: US)
  Receive Date: 20201201
  Receipt Date: 20201222
  Transmission Date: 20210114
  Serious: Yes (Hospitalization, Other)
  Sender: FDA-Public Use
  Company Number: US-ASTRAZENECA-2020SF41215

PATIENT
  Age: 25545 Day
  Sex: Female
  Weight: 51.3 kg

DRUGS (4)
  1. LEVITRACIN [Concomitant]
     Indication: SEIZURE
     Route: 065
     Dates: start: 20200811
  2. TAGRISSO [Suspect]
     Active Substance: OSIMERTINIB
     Indication: NON-SMALL CELL LUNG CANCER STAGE IV
     Route: 048
     Dates: start: 20200915, end: 20201030
  3. DEXIMETHISONE [Concomitant]
     Indication: CEREBRAL DISORDER
     Dates: start: 20200801, end: 20200925
  4. PANTOPRAZOLE [Concomitant]
     Active Substance: PANTOPRAZOLE
     Indication: GASTROOESOPHAGEAL REFLUX DISEASE
     Route: 065
     Dates: start: 20200811

REACTIONS (4)
  - Liver disorder [Recovering/Resolving]
  - Pruritus [Unknown]
  - Drug-induced liver injury [Recovering/Resolving]
  - Jaundice [Unknown]

NARRATIVE: CASE EVENT DATE: 20200906
